FAERS Safety Report 18359897 (Version 1)
Quarter: 2020Q4

REPORT INFORMATION
  Report Type: Spontaneous
  Country: GB (occurrence: GB)
  Receive Date: 20201008
  Receipt Date: 20201008
  Transmission Date: 20210114
  Serious: Yes (Hospitalization)
  Sender: FDA-Public Use
  Company Number: GB-MYLANLABS-2020M1084307

PATIENT
  Age: 41 Year
  Sex: Female

DRUGS (2)
  1. ZOPICLONE [Concomitant]
     Active Substance: ZOPICLONE
     Dosage: UNK
  2. CITALOPRAM [Suspect]
     Active Substance: CITALOPRAM HYDROBROMIDE
     Indication: ANXIETY
     Dosage: 20 MILLIGRAM
     Route: 048

REACTIONS (9)
  - Personality change [Recovering/Resolving]
  - Agitation [Recovering/Resolving]
  - Palpitations [Recovering/Resolving]
  - Dysgeusia [Recovering/Resolving]
  - Bruxism [Recovering/Resolving]
  - Bipolar I disorder [Recovering/Resolving]
  - Restlessness [Recovering/Resolving]
  - Self-injurious ideation [Recovering/Resolving]
  - Suicidal ideation [Recovering/Resolving]
